FAERS Safety Report 8462014-4 (Version None)
Quarter: 2012Q2

REPORT INFORMATION
  Report Type: 
  Country: None (occurrence: None)
  Receive Date: 20120625
  Receipt Date: 20120614
  Transmission Date: 20120825
  Serious: Yes (Death)
  Sender: FDA-Public Use
  Company Number: DK-TEVA-343125ISR

PATIENT
  Sex: Male

DRUGS (3)
  1. ACTEMRA [Suspect]
     Indication: RHEUMATOID ARTHRITIS
     Dosage: 20 MILLIGRAM;
     Route: 042
     Dates: start: 20100801, end: 20120223
  2. PREDNISOLONE [Suspect]
     Indication: RHEUMATOID ARTHRITIS
     Dates: start: 20020404
  3. METHOTREXATE [Suspect]
     Indication: RHEUMATOID ARTHRITIS
     Dates: start: 20020404

REACTIONS (3)
  - CARDIAC FAILURE [None]
  - STAPHYLOCOCCAL SEPSIS [None]
  - PNEUMONIA [None]
